FAERS Safety Report 8467455-7 (Version None)
Quarter: 2012Q2

REPORT INFORMATION
  Report Type: 
  Country: None (occurrence: None)
  Receive Date: 20120626
  Receipt Date: 20120411
  Transmission Date: 20120825
  Serious: No
  Sender: FDA-Public Use
  Company Number: US-ASTRAZENECA-2012SE23723

PATIENT
  Age: 61 Year
  Sex: Male

DRUGS (2)
  1. CAPRELSA [Suspect]
     Indication: THYROID CANCER
     Route: 048
  2. BONIVA [Concomitant]

REACTIONS (2)
  - HYPOAESTHESIA [None]
  - RASH [None]
